FAERS Safety Report 9643978 (Version 1)
Quarter: 2013Q4

REPORT INFORMATION
  Report Type: Spontaneous
  Country: GB (occurrence: None)
  Receive Date: 20131023
  Receipt Date: 20131023
  Transmission Date: 20140711
  Serious: Yes (Hospitalization)
  Sender: FDA-Public Use
  Company Number: GB-DEXPHARM-20130755

PATIENT
  Age: 70 Year
  Sex: Female

DRUGS (4)
  1. OMEPRAZOLE [Suspect]
     Indication: GASTROOESOPHAGEAL REFLUX DISEASE
     Dosage: 20 MG MILLIGRAM(S) SEP. DOSAGES /INTERVAL: 1 IN 1 DAYS ORAL
     Route: 048
     Dates: end: 20130301
  2. AMIODIPINE [Concomitant]
  3. SPIRIVA [Concomitant]
  4. VENTOTIN [Concomitant]

REACTIONS (5)
  - Arrhythmia [None]
  - Hypocalcaemia [None]
  - Hypokalaemia [None]
  - Hypomagnesaemia [None]
  - Syncope [None]
